FAERS Safety Report 6876715-2 (Version None)
Quarter: 2010Q3

REPORT INFORMATION
  Report Type: 
  Country: None (occurrence: None)
  Receive Date: 20100727
  Receipt Date: 20100716
  Transmission Date: 20110219
  Serious: Yes (Hospitalization)
  Sender: FDA-Public Use
  Company Number: US-ROCHE-716860

PATIENT
  Sex: Male
  Weight: 77.1 kg

DRUGS (4)
  1. BEVACIZUMAB [Suspect]
     Indication: GLIOBLASTOMA MULTIFORME
     Route: 042
     Dates: start: 20100422, end: 20100701
  2. TEMOZOLOMIDE [Suspect]
     Indication: GLIOBLASTOMA MULTIFORME
     Dosage: FREQUENCY: QD X 5DAYS, Q 2 WKS.
     Route: 048
     Dates: start: 20100422, end: 20100705
  3. HYZAAR [Concomitant]
  4. SIMVASTATIN [Concomitant]

REACTIONS (1)
  - SMALL INTESTINAL OBSTRUCTION [None]
